FAERS Safety Report 20456382 (Version 1)
Quarter: 2022Q1

REPORT INFORMATION
  Report Type: Spontaneous
  Country: AT (occurrence: None)
  Receive Date: 20220210
  Receipt Date: 20220210
  Transmission Date: 20220423
  Serious: Yes (Other)
  Sender: FDA-Public Use
  Company Number: AT-Merck Healthcare KGaA-9297863

PATIENT
  Sex: Male

DRUGS (1)
  1. AVELUMAB [Suspect]
     Active Substance: AVELUMAB
     Indication: Bladder neoplasm
     Dates: start: 20201106, end: 20210528

REACTIONS (3)
  - Polyneuropathy [Unknown]
  - Blood creatinine abnormal [Unknown]
  - Colitis [Unknown]
